FAERS Safety Report 6718475-1 (Version None)
Quarter: 2010Q2

REPORT INFORMATION
  Report Type: 
  Country: None (occurrence: None)
  Receive Date: 20100503
  Receipt Date: 20100428
  Transmission Date: 20101027
  Serious: Yes (Hospitalization, Disabling)
  Sender: FDA-Public Use
  Company Number: C-10-026

PATIENT
  Sex: Female

DRUGS (2)
  1. PHENTERMINE [Suspect]
     Dates: start: 20070711, end: 20081204
  2. PHENTERMINE [Suspect]

REACTIONS (1)
  - SPLENIC ARTERY ANEURYSM [None]
